FAERS Safety Report 17558430 (Version 1)
Quarter: 2020Q1

REPORT INFORMATION
  Report Type: Spontaneous
  Country: US (occurrence: US)
  Receive Date: 20200311
  Receipt Date: 20200311
  Transmission Date: 20200409
  Serious: No
  Sender: FDA-Public Use
  Company Number: None

PATIENT
  Age: 59 Year
  Sex: Female

DRUGS (1)
  1. MEKINIST [Suspect]
     Active Substance: TRAMETINIB DIMETHYL SULFOXIDE
     Dosage: ?          OTHER DOSE:1 TABLET;?
     Route: 048
     Dates: start: 2019

REACTIONS (2)
  - Blood pressure increased [None]
  - Rash [None]

NARRATIVE: CASE EVENT DATE: 20200311
